FAERS Safety Report 10781290 (Version 2)
Quarter: 2015Q1

REPORT INFORMATION
  Report Type: Spontaneous
  Country: ES (occurrence: ES)
  Receive Date: 20150210
  Receipt Date: 20150211
  Transmission Date: 20150721
  Serious: Yes (Hospitalization, Other)
  Sender: FDA-Public Use
  Company Number: ES-009507513-1502ESP001565

PATIENT
  Age: 62 Year
  Sex: Male
  Weight: 55 kg

DRUGS (5)
  1. ASPIRIN. [Concomitant]
     Active Substance: ASPIRIN
     Dosage: 100 MG, ONCE IN THE MORNING
     Dates: start: 200308
  2. JANUMET [Suspect]
     Active Substance: METFORMIN HYDROCHLORIDE\SITAGLIPTIN PHOSPHATE
     Dosage: 50MG/1000MG, TWO TIMES A DAY (1-0-1)
     Route: 048
     Dates: start: 20091029
  3. ATORVASTATIN [Concomitant]
     Active Substance: ATORVASTATIN
     Indication: HYPERCHOLESTEROLAEMIA
     Dosage: 40 MG/ DAY
     Dates: start: 200411
  4. HYDROCHLOROTHIAZIDE (+) IRBESARTAN [Concomitant]
     Dosage: UNK
     Dates: start: 200310
  5. ATORVASTATIN [Concomitant]
     Active Substance: ATORVASTATIN
     Dosage: 80 MG, DAILY (AT NIGHT)

REACTIONS (1)
  - Ischaemic stroke [Recovered/Resolved]

NARRATIVE: CASE EVENT DATE: 20100630
